FAERS Safety Report 23553080 (Version 2)
Quarter: 2024Q2

REPORT INFORMATION
  Report Type: Spontaneous
  Country: JP (occurrence: JP)
  Receive Date: 20240222
  Receipt Date: 20240403
  Transmission Date: 20240716
  Serious: Yes (Other)
  Sender: FDA-Public Use
  Company Number: JP-BAYER-2024A028429

PATIENT
  Age: 80 Year
  Sex: Male

DRUGS (5)
  1. NEXAVAR [Suspect]
     Active Substance: SORAFENIB
     Indication: Thyroid cancer
     Dosage: 600 MG
     Dates: start: 20230126, end: 20230213
  2. NEXAVAR [Suspect]
     Active Substance: SORAFENIB
     Indication: Metastases to central nervous system
     Dosage: 400 MG
     Dates: start: 20230216, end: 20230318
  3. NEXAVAR [Suspect]
     Active Substance: SORAFENIB
     Indication: Metastases to lung
     Dosage: 400 MG, 5 DAYS ADMINISTRATION 2 DAYS WITHDRAWAL
     Dates: start: 20230320
  4. NEXAVAR [Suspect]
     Active Substance: SORAFENIB
     Indication: Metastases to bone
     Dosage: 400 MG
     Dates: start: 20230601, end: 20230720
  5. NEXAVAR [Suspect]
     Active Substance: SORAFENIB
     Indication: Metastases to liver
     Dosage: 400 MG, 400 MG, 4 DAYS ADMINISTRATION 3 DAYS WITHDRAWAL
     Dates: start: 20230726, end: 20240314

REACTIONS (3)
  - Metastases to central nervous system [Unknown]
  - Thyroid cancer [None]
  - Off label use [None]

NARRATIVE: CASE EVENT DATE: 20230126
